FAERS Safety Report 4882934-7 (Version None)
Quarter: 2006Q1

REPORT INFORMATION
  Report Type: 
  Country: None (occurrence: None)
  Receive Date: 20060113
  Receipt Date: 20051103
  Transmission Date: 20060701
  Serious: Yes (Hospitalization)
  Sender: FDA-Public Use
  Company Number: EWC051147161

PATIENT
  Age: 48 Year
  Sex: Male

DRUGS (1)
  1. TADALAFIL (TADALAFIL) TABLET [Suspect]
     Indication: ERECTILE DYSFUNCTION
     Dosage: ORAL
     Route: 048
     Dates: start: 20030101, end: 20030101

REACTIONS (4)
  - CAVERNOUS SINUS THROMBOSIS [None]
  - CEREBROVASCULAR ACCIDENT [None]
  - HAEMORRHAGE [None]
  - REFUSAL OF TREATMENT BY PATIENT [None]
